FAERS Safety Report 5108186-0 (Version None)
Quarter: 2006Q3

REPORT INFORMATION
  Report Type: 
  Country: None (occurrence: None)
  Receive Date: 20060919
  Receipt Date: 20060829
  Transmission Date: 20061208
  Serious: Yes (Other)
  Sender: FDA-Public Use
  Company Number: BR-ROCHE-461346

PATIENT
  Age: 41 Year
  Sex: Female
  Weight: 56 kg

DRUGS (3)
  1. RIVOTRIL [Suspect]
     Indication: ANXIETY
     Route: 048
     Dates: start: 20060615
  2. RIVOTRIL [Suspect]
     Dosage: 2 MG IN THE MORNING AND 4 MG AT NIGHT
     Route: 048
     Dates: start: 20010615, end: 20060615
  3. HALDOL SOLUTAB [Concomitant]
     Route: 048

REACTIONS (5)
  - DELIRIUM [None]
  - DRUG WITHDRAWAL SYNDROME [None]
  - INSOMNIA [None]
  - SOMNOLENCE [None]
  - TREMOR [None]
